FAERS Safety Report 13109192 (Version 3)
Quarter: 2017Q3

REPORT INFORMATION
  Report Type: Spontaneous
  Country: PL (occurrence: PL)
  Receive Date: 20170112
  Receipt Date: 20170816
  Transmission Date: 20171127
  Serious: Yes (Other)
  Sender: FDA-Public Use
  Company Number: PL-JNJFOC-20170106093

PATIENT

DRUGS (1)
  1. REMICADE [Suspect]
     Active Substance: INFLIXIMAB
     Indication: COLITIS ULCERATIVE
     Dosage: INDUCTION REGIMEN AT 0, 2 AND 6 WEEK
     Route: 042

REACTIONS (3)
  - Hypersensitivity [Unknown]
  - Drug ineffective [Unknown]
  - Colectomy [Unknown]
